FAERS Safety Report 23762251 (Version 4)
Quarter: 2025Q1

REPORT INFORMATION
  Report Type: Report from Study
  Country: US (occurrence: US)
  Receive Date: 20240419
  Receipt Date: 20250114
  Transmission Date: 20250408
  Serious: Yes (Hospitalization)
  Sender: RECORDATI
  Company Number: US-RECORDATI RARE DISEASES-2023000377

PATIENT

DRUGS (9)
  1. CARBAGLU [Suspect]
     Active Substance: CARGLUMIC ACID
     Indication: Methylmalonic acidaemia
     Dosage: 200 MILLIGRAM, BID
     Dates: start: 20220818
  2. CARBAGLU [Suspect]
     Active Substance: CARGLUMIC ACID
     Dosage: DISSOLVE 2 TABLETS IN 2.5 ML OF WATER PER TABLET VIA G-TUBE AT 6 IN THE MORNING, THEN DISSOLVE 1 TAB
  3. CARBAGLU [Suspect]
     Active Substance: CARGLUMIC ACID
     Dosage: 400MG AT 6 AM AND 10PM,  200MG AT 2PM)
  4. CARBAGLU [Suspect]
     Active Substance: CARGLUMIC ACID
     Dosage: 400 MG, Q8H (400MG AT 6AM, 2 PM, AND 10PM)
  5. CARBAGLU [Suspect]
     Active Substance: CARGLUMIC ACID
     Dosage: 400 MG, Q8H, (TWO 200 MG, TABLETS)
  6. CYANOCOBALAMIN [Concomitant]
     Active Substance: CYANOCOBALAMIN
     Indication: Product used for unknown indication
  7. CITRIC ACID [Concomitant]
     Active Substance: CITRIC ACID MONOHYDRATE
     Indication: Product used for unknown indication
  8. LEVOCARNITINE [Concomitant]
     Active Substance: LEVOCARNITINE
     Indication: Product used for unknown indication
  9. OMEPRAZOLE [Concomitant]
     Active Substance: OMEPRAZOLE
     Indication: Product used for unknown indication

REACTIONS (5)
  - Hospitalisation [Unknown]
  - Hospitalisation [Not Recovered/Not Resolved]
  - Liver transplant [Recovering/Resolving]
  - Hospitalisation [Unknown]
  - Hospitalisation [Unknown]
